FAERS Safety Report 12466720 (Version 1)
Quarter: 2016Q2

REPORT INFORMATION
  Report Type: Spontaneous
  Country: US (occurrence: US)
  Receive Date: 20160615
  Receipt Date: 20160615
  Transmission Date: 20160815
  Serious: Yes (Hospitalization, Other)
  Sender: FDA-Public Use
  Company Number: US-ACCORD-041417

PATIENT
  Age: 73 Year
  Sex: Female

DRUGS (2)
  1. PACLITAXEL/PACLITAXEL LIPOSOME [Suspect]
     Active Substance: PACLITAXEL
     Indication: UTERINE CANCER
     Dosage: FIRST CYCLE
  2. CARBOPLATIN. [Suspect]
     Active Substance: CARBOPLATIN
     Indication: UTERINE CANCER
     Dosage: FIRST CYCLE

REACTIONS (6)
  - Uterine cancer [None]
  - Neutropenia [Unknown]
  - Malignant neoplasm progression [None]
  - Off label use [Unknown]
  - Urosepsis [Unknown]
  - Obstructive nephropathy [None]
